FAERS Safety Report 7468595-1 (Version None)
Quarter: 2011Q2

REPORT INFORMATION
  Report Type: 
  Country: None (occurrence: None)
  Receive Date: 20110509
  Receipt Date: 20110415
  Transmission Date: 20111010
  Serious: No
  Sender: FDA-Public Use
  Company Number: US-BAYER-2011-033690

PATIENT
  Sex: Female

DRUGS (1)
  1. AVELOX [Suspect]
     Indication: SINUSITIS
     Dosage: 400 MG, QD
     Dates: start: 20110405

REACTIONS (6)
  - DIARRHOEA [None]
  - ABDOMINAL PAIN UPPER [None]
  - ASTHENIA [None]
  - NAUSEA [None]
  - FLATULENCE [None]
  - NIGHT SWEATS [None]
